FAERS Safety Report 4307323-5 (Version None)
Quarter: 2004Q1

REPORT INFORMATION
  Report Type: 
  Country: None (occurrence: None)
  Receive Date: 20040226
  Receipt Date: 20040218
  Transmission Date: 20041129
  Serious: Yes (Hospitalization)
  Sender: FDA-Public Use
  Company Number: 200300015

PATIENT
  Age: 61 Year
  Sex: Male
  Weight: 133.45 kg

DRUGS (3)
  1. MOTRIN MIGRAINE TABLETS [Suspect]
     Indication: HEADACHE
  2. NATAGLINIDE VS PLACEBO (CODE NOT BROKEN) [Suspect]
     Indication: GLUCOSE TOLERANCE IMPAIRED
     Dates: start: 20030204
  3. VALSARTAN VS PLACEBO [Suspect]
     Indication: CARDIOVASCULAR DISORDER

REACTIONS (8)
  - BLOOD UREA INCREASED [None]
  - CONCOMITANT DISEASE PROGRESSION [None]
  - DYSPNOEA EXERTIONAL [None]
  - ELECTROCARDIOGRAM ST-T CHANGE [None]
  - GASTROINTESTINAL HAEMORRHAGE [None]
  - HAEMATOCRIT DECREASED [None]
  - HAEMOGLOBIN DECREASED [None]
  - RED BLOOD CELL COUNT DECREASED [None]
